FAERS Safety Report 7822100-6 (Version None)
Quarter: 2011Q4

REPORT INFORMATION
  Report Type: 
  Country: None (occurrence: None)
  Receive Date: 20111018
  Receipt Date: 20111006
  Transmission Date: 20120403
  Serious: Yes (Hospitalization)
  Sender: FDA-Public Use
  Company Number: US-JNJFOC-20111003138

PATIENT
  Sex: Female
  Weight: 86.18 kg

DRUGS (2)
  1. REMICADE [Suspect]
     Indication: PSORIATIC ARTHROPATHY
     Route: 042
     Dates: start: 20110818
  2. REMICADE [Suspect]
     Route: 042
     Dates: start: 20110804

REACTIONS (6)
  - OEDEMA PERIPHERAL [None]
  - IMPAIRED HEALING [None]
  - MUSCLE RUPTURE [None]
  - ABASIA [None]
  - PYREXIA [None]
  - ERYTHEMA [None]
